FAERS Safety Report 9586589 (Version 1)
Quarter: 2013Q3

REPORT INFORMATION
  Report Type: Spontaneous
  Country: IN (occurrence: None)
  Receive Date: 20130926
  Receipt Date: 20130926
  Transmission Date: 20140515
  Serious: Yes (Hospitalization)
  Sender: FDA-Public Use
  Company Number: 2013-01390

PATIENT
  Age: 37 Year
  Sex: Male

DRUGS (3)
  1. VALPROATE [Suspect]
     Indication: HEADACHE
     Dosage: 500 MG (UNKNOWN, PER DAY), INTRAVENOUS
     Route: 042
  2. VALPROATE [Suspect]
     Indication: VOMITING
     Dosage: 500 MG (UNKNOWN, PER DAY), INTRAVENOUS
     Route: 042
  3. TOPIRAMATE [Suspect]
     Indication: MIGRAINE PROPHYLAXIS
     Dosage: 12.5 MG (UNKNOWN, DAILY), UNKNOWN

REACTIONS (2)
  - Toxic encephalopathy [None]
  - Drug interaction [None]
